FAERS Safety Report 21285066 (Version 1)
Quarter: 2022Q3

REPORT INFORMATION
  Report Type: Spontaneous
  Country: FR (occurrence: FR)
  Receive Date: 20220902
  Receipt Date: 20220902
  Transmission Date: 20221027
  Serious: Yes (Life-Threatening)
  Sender: FDA-Public Use
  Company Number: None

PATIENT
  Age: 75 Year
  Sex: Female
  Weight: 61 kg

DRUGS (1)
  1. TOCILIZUMAB [Suspect]
     Active Substance: TOCILIZUMAB
     Indication: Rheumatoid arthritis
     Dosage: 8MG/KG EVERY 4 WEEKS
     Route: 042
     Dates: start: 201806, end: 20220630

REACTIONS (2)
  - Malignant peritoneal neoplasm [Not Recovered/Not Resolved]
  - Fallopian tube cancer [Not Recovered/Not Resolved]

NARRATIVE: CASE EVENT DATE: 20220728
